FAERS Safety Report 12175090 (Version 1)
Quarter: 2016Q1

REPORT INFORMATION
  Report Type: Spontaneous
  Country: US (occurrence: US)
  Receive Date: 20160314
  Receipt Date: 20160314
  Transmission Date: 20160526
  Serious: Yes (Hospitalization)
  Sender: FDA-Public Use
  Company Number: US-SMITH AND NEPHEW, INC-2016SMT00197

PATIENT
  Age: 61 Year
  Sex: Male
  Weight: 96.15 kg

DRUGS (3)
  1. UNSPECIFIED MEDICATION(S) [Concomitant]
  2. REGRANEX [Suspect]
     Active Substance: BECAPLERMIN
     Indication: WOUND
     Dosage: UNK, 1X/DAY
     Route: 061
     Dates: end: 201602
  3. METFORMIN HYDROCHLORIDE. [Concomitant]
     Active Substance: METFORMIN HYDROCHLORIDE

REACTIONS (2)
  - Skin exfoliation [Unknown]
  - Application site infection [Unknown]

NARRATIVE: CASE EVENT DATE: 201602
